FAERS Safety Report 4498169-6 (Version None)
Quarter: 2004Q4

REPORT INFORMATION
  Report Type: 
  Country: None (occurrence: None)
  Receive Date: 20041110
  Receipt Date: 20041103
  Transmission Date: 20050328
  Serious: Yes (Death)
  Sender: FDA-Public Use
  Company Number: PL-MERCK-0411POL00002

PATIENT

DRUGS (1)
  1. VIOXX [Suspect]
     Route: 065

REACTIONS (1)
  - DEATH [None]
